FAERS Safety Report 17010050 (Version 1)
Quarter: 2019Q4

REPORT INFORMATION
  Report Type: Spontaneous
  Country: GB (occurrence: GB)
  Receive Date: 20191108
  Receipt Date: 20191108
  Transmission Date: 20200122
  Serious: Yes (Other)
  Sender: FDA-Public Use
  Company Number: GB-PFIZER INC-2019476923

PATIENT
  Age: 31 Year
  Sex: Female
  Weight: 62 kg

DRUGS (11)
  1. CO-AMOXICLAV [Concomitant]
     Active Substance: AMOXICILLIN\CLAVULANATE POTASSIUM
     Dosage: 3 DF, 1X/DAY
     Dates: start: 20190820, end: 20190827
  2. METHOTREXATE. [Concomitant]
     Active Substance: METHOTREXATE
     Dosage: 160 MG, WEEKLY
     Dates: start: 20190430, end: 20190924
  3. SULFASALAZINE. [Suspect]
     Active Substance: SULFASALAZINE
     Dosage: 500 MG, UNK
     Dates: start: 20190812
  4. PREDNISOLONE. [Concomitant]
     Active Substance: PREDNISOLONE
     Dosage: UNK; AS ADVISED BY SPECIALIST
     Dates: start: 20190913, end: 20191011
  5. NITROFURANTOIN. [Concomitant]
     Active Substance: NITROFURANTOIN
     Dosage: 2 DF, 1X/DAY
     Dates: start: 20190912, end: 20190919
  6. AMOXICILLIN. [Concomitant]
     Active Substance: AMOXICILLIN
     Dosage: 3 DF, 1X/DAY
     Dates: start: 20190926, end: 20191001
  7. FOLIC ACID. [Concomitant]
     Active Substance: FOLIC ACID
     Dosage: UNK, WEEKLY (ONCE A WEEK ON A DIFFERENT DAY TO METHOTREXATE)
     Dates: start: 20190430, end: 20190924
  8. UTOVLAN [Concomitant]
     Dosage: 3 DF, 1X/DAY
     Dates: start: 20190809, end: 20190906
  9. CITALOPRAM [Concomitant]
     Active Substance: CITALOPRAM HYDROBROMIDE
     Dosage: 1 DF, 1X/DAY
     Dates: start: 20190812, end: 20191010
  10. AMITRIPTYLINE HYDROCHLORIDE. [Concomitant]
     Active Substance: AMITRIPTYLINE HYDROCHLORIDE
     Dosage: UNK, ALTERNATE DAY (TAKE ONE EVERY OTHER DAY - THEN STOP)
     Dates: start: 20190715, end: 20190729
  11. SYSTANE (HYPROMELLOSE 2910 (4000 MPA.S)) [Concomitant]
     Active Substance: HYPROMELLOSE 2910 (4000 MPA.S)
     Dosage: UNK, AS NEEDED (ONE DROP WHEN REQUIRED AS DIRECTED. DISCARD BOT...)
     Dates: start: 20190501

REACTIONS (3)
  - Erythema [Unknown]
  - Dermatitis allergic [Recovered/Resolved]
  - Swelling [Recovered/Resolved]

NARRATIVE: CASE EVENT DATE: 2019
